FAERS Safety Report 6777767 (Version 2)
Quarter: 2012Q4

REPORT INFORMATION
  Report Type: 
  Country: US (occurrence: US)
  Receive Date: 20081002
  Receipt Date: 20120911
  Transmission Date: 20130627
  Serious: No
  Sender: FDA-Public Use
  Company Number: US-B.I. PHARMACEUTICALS,INC./RIDGEFIELD-2008-BP-15104BP

PATIENT
  Age: 63 None
  Sex: Female

DRUGS (13)
  1. ATROVENT INHALATION AEROSOL HFA [Suspect]
     Indication: ASTHMA
     Dosage: 4 puf
     Route: 055
  2. ATROVENT  HFA [Suspect]
     Dosage: 4 puf
     Route: 055
     Dates: start: 20120828
  3. TEKTURNA [Suspect]
     Dates: start: 200809
  4. ASMANEX [Concomitant]
     Indication: ASTHMA
     Dosage: 440 mcg
     Route: 055
     Dates: start: 2005
  5. SINGULAIR [Concomitant]
     Indication: HYPERSENSITIVITY
     Dates: start: 2002
  6. SINGULAIR [Concomitant]
     Indication: ASTHMA
  7. OMEPRAZOLE [Concomitant]
     Indication: GASTROOESOPHAGEAL REFLUX DISEASE
     Dosage: 40 mg
     Route: 048
     Dates: start: 2007
  8. BYSTOLIC [Concomitant]
     Indication: BLOOD PRESSURE ABNORMAL
     Dosage: 5 mg
     Route: 048
     Dates: start: 2007
  9. EPLERENONE [Concomitant]
     Indication: BLOOD PRESSURE ABNORMAL
     Dosage: 50 mg
     Route: 048
     Dates: start: 2007
  10. RESTASIS [Concomitant]
     Indication: EYE DISORDER
     Dates: start: 201206
  11. XOPENEX [Concomitant]
     Indication: ASTHMA
  12. VIT D [Concomitant]
     Indication: VITAMIN D DEFICIENCY
  13. NEXOIM [Concomitant]

REACTIONS (3)
  - Feeling jittery [Not Recovered/Not Resolved]
  - Alopecia [Not Recovered/Not Resolved]
  - Dyspnoea [Not Recovered/Not Resolved]
